FAERS Safety Report 8449703-2 (Version None)
Quarter: 2012Q2

REPORT INFORMATION
  Report Type: 
  Country: None (occurrence: None)
  Receive Date: 20120620
  Receipt Date: 20120615
  Transmission Date: 20120825
  Serious: No
  Sender: FDA-Public Use
  Company Number: US-PFIZER INC-2012145018

PATIENT
  Sex: Female

DRUGS (2)
  1. PREMARIN [Suspect]
     Indication: BREAST CANCER
     Dosage: UNK
     Dates: start: 20120610
  2. FISH OIL [Concomitant]
     Dosage: UNK

REACTIONS (1)
  - PHOTOSENSITIVITY REACTION [None]
